FAERS Safety Report 4757218-8 (Version None)
Quarter: 2005Q3

REPORT INFORMATION
  Report Type: 
  Country: None (occurrence: None)
  Receive Date: 20050829
  Receipt Date: 20050815
  Transmission Date: 20060218
  Serious: Yes (Hospitalization, Other)
  Sender: FDA-Public Use
  Company Number: 2005116340

PATIENT
  Age: 79 Year
  Sex: Female
  Weight: 89.8122 kg

DRUGS (3)
  1. BENADRYL [Suspect]
     Indication: MYCOTIC ALLERGY
     Dosage: 1 TABLE SPOONFULL PRN, ORAL
     Route: 048
     Dates: start: 20031101
  2. GLIMEPIRIDE [Concomitant]
  3. PARACETAMOL (PARACETAMOL) [Concomitant]

REACTIONS (2)
  - CARDIAC DISORDER [None]
  - DRUG INEFFECTIVE [None]
